FAERS Safety Report 15803556 (Version 1)
Quarter: 2019Q1

REPORT INFORMATION
  Report Type: Spontaneous
  Country: US (occurrence: US)
  Receive Date: 20190109
  Receipt Date: 20190109
  Transmission Date: 20190417
  Serious: No
  Sender: FDA-Public Use
  Company Number: US-SUNOVION-2019SUN000006

PATIENT
  Sex: Female

DRUGS (1)
  1. LATUDA [Suspect]
     Active Substance: LURASIDONE HYDROCHLORIDE
     Dosage: 80 MG (LATUDA 20MG+LATUDA 60MG)
     Route: 048

REACTIONS (5)
  - Product dose omission [Unknown]
  - Gait inability [Unknown]
  - Aphasia [Unknown]
  - Tremor [Unknown]
  - Dysphemia [Unknown]
